FAERS Safety Report 6785206-9 (Version None)
Quarter: 2010Q2

REPORT INFORMATION
  Report Type: 
  Country: None (occurrence: None)
  Receive Date: 20100622
  Receipt Date: 20100622
  Transmission Date: 20101027
  Serious: Yes (Hospitalization)
  Sender: FDA-Public Use
  Company Number: None

PATIENT
  Age: 16 Year
  Sex: Male
  Weight: 81.8 kg

DRUGS (1)
  1. MIGRANAL [Suspect]
     Indication: MIGRAINE
     Dosage: 0.5MG (1 SPRAY) IN EACH NOSTRIL 2ND DOSE IN 20 MIN INTRANSASL
     Route: 045
     Dates: start: 20100601

REACTIONS (5)
  - DRUG HYPERSENSITIVITY [None]
  - DYSPHAGIA [None]
  - EPISTAXIS [None]
  - MIGRAINE [None]
  - NASAL OEDEMA [None]
